FAERS Safety Report 21949645 (Version 1)
Quarter: 2023Q1

REPORT INFORMATION
  Report Type: Spontaneous
  Country: CN (occurrence: CN)
  Receive Date: 20230203
  Receipt Date: 20230203
  Transmission Date: 20230418
  Serious: Yes (Hospitalization)
  Sender: FDA-Public Use
  Company Number: CN-AstraZeneca-2023A019245

PATIENT
  Age: 81 Year
  Sex: Male
  Weight: 60 kg

DRUGS (2)
  1. METOPROLOL SUCCINATE [Suspect]
     Active Substance: METOPROLOL SUCCINATE
     Indication: Hypertension
     Route: 048
     Dates: start: 20200912
  2. METOPROLOL SUCCINATE [Suspect]
     Active Substance: METOPROLOL SUCCINATE
     Route: 048
     Dates: start: 20221212, end: 20221218

REACTIONS (2)
  - Asthma [Recovering/Resolving]
  - Vomiting [Recovered/Resolved]

NARRATIVE: CASE EVENT DATE: 20221218
